APPROVED DRUG PRODUCT: IBU
Active Ingredient: IBUPROFEN
Strength: 800MG
Dosage Form/Route: TABLET;ORAL
Application: A070745 | Product #001
Applicant: BASF CORP
Approved: Jul 23, 1986 | RLD: No | RS: No | Type: DISCN